FAERS Safety Report 24150774 (Version 3)
Quarter: 2024Q3

REPORT INFORMATION
  Report Type: Report from Study
  Country: CO (occurrence: CO)
  Receive Date: 20240730
  Receipt Date: 20240930
  Transmission Date: 20241016
  Serious: Yes (Other)
  Sender: UCB
  Company Number: CO-UCBSA-2024038143

PATIENT
  Age: 61 Year
  Sex: Female

DRUGS (6)
  1. CERTOLIZUMAB PEGOL [Suspect]
     Active Substance: CERTOLIZUMAB PEGOL
     Indication: Rheumatoid arthritis
     Dosage: 400 MILLIGRAM, EV 30 DAYS
     Route: 058
     Dates: start: 20240206, end: 20240527
  2. LEFLUNOMIDE [Concomitant]
     Active Substance: LEFLUNOMIDE
     Indication: Product used for unknown indication
     Dosage: UNK
  3. AMLODIPINE [Concomitant]
     Active Substance: AMLODIPINE BESYLATE
     Indication: Product used for unknown indication
     Dosage: UNK
  4. VALSARTAN [Concomitant]
     Active Substance: VALSARTAN
     Indication: Product used for unknown indication
     Dosage: UNK
  5. ATORVASTATIN [Concomitant]
     Active Substance: ATORVASTATIN
     Indication: Product used for unknown indication
     Dosage: UNK
  6. PREDNISOLONE [Concomitant]
     Active Substance: PREDNISOLONE
     Indication: Product used for unknown indication
     Dosage: UNK

REACTIONS (9)
  - Crown lengthening [Recovered/Resolved]
  - Influenza [Recovered/Resolved]
  - Dental caries [Recovered/Resolved]
  - Tooth extraction [Recovered/Resolved]
  - Haematoma [Not Recovered/Not Resolved]
  - Gingival pain [Not Recovered/Not Resolved]
  - Noninfective gingivitis [Not Recovered/Not Resolved]
  - Off label use [Unknown]
  - Gingival bleeding [Not Recovered/Not Resolved]

NARRATIVE: CASE EVENT DATE: 20240206
